FAERS Safety Report 7500143-X (Version None)
Quarter: 2011Q2

REPORT INFORMATION
  Report Type: 
  Country: None (occurrence: None)
  Receive Date: 20110524
  Receipt Date: 20100407
  Transmission Date: 20111010
  Serious: No
  Sender: FDA-Public Use
  Company Number: US-NOVEN-ALL1-2010-02100

PATIENT

DRUGS (2)
  1. DAYTRANA [Suspect]
     Dosage: 20 MG, 1X/DAY:QD (M-F)
     Route: 062
     Dates: start: 20100301, end: 20100319
  2. DAYTRANA [Suspect]
     Dosage: 20 MG, OTHER (MONDAY TO FRIDAY)
     Route: 048
     Dates: start: 20100328

REACTIONS (1)
  - APPLICATION SITE IRRITATION [None]
